FAERS Safety Report 12721512 (Version 1)
Quarter: 2016Q3

REPORT INFORMATION
  Report Type: Other
  Country: US (occurrence: US)
  Receive Date: 20160907
  Receipt Date: 20160907
  Transmission Date: 20161109
  Serious: No
  Sender: FDA-Public Use
  Company Number: US-COL_22069_2016

PATIENT
  Sex: Female

DRUGS (2)
  1. COLGATE TOTAL WHITENING [Suspect]
     Active Substance: SODIUM FLUORIDE\TRICLOSAN
     Dosage: COVERED HALF THE HEAD OF TOOTHBRUSH/BID OR TID/
     Route: 048
     Dates: start: 2015, end: 2015
  2. COLGATE TOTAL WHITENING [Suspect]
     Active Substance: SODIUM FLUORIDE\TRICLOSAN
     Indication: PRODUCT USED FOR UNKNOWN INDICATION
     Dosage: COVERED HALF THE HEAD OF TOOTHBRUSH/BID OR TID/
     Route: 048
     Dates: start: 201601

REACTIONS (3)
  - Oropharyngeal pain [Not Recovered/Not Resolved]
  - Dysphonia [Not Recovered/Not Resolved]
  - Hypersensitivity [Not Recovered/Not Resolved]

NARRATIVE: CASE EVENT DATE: 2015
